FAERS Safety Report 18755497 (Version 1)
Quarter: 2021Q1

REPORT INFORMATION
  Report Type: Spontaneous
  Country: CN (occurrence: CN)
  Receive Date: 20210119
  Receipt Date: 20210119
  Transmission Date: 20210419
  Serious: Yes (Hospitalization)
  Sender: FDA-Public Use
  Company Number: CN-NOVOPROD-780674

PATIENT
  Age: 85 Year
  Sex: Female

DRUGS (1)
  1. NOVORAPID [Suspect]
     Active Substance: INSULIN ASPART
     Indication: DIABETES MELLITUS
     Dosage: 6 IU, TID
     Route: 058
     Dates: start: 20201214, end: 20201222

REACTIONS (3)
  - Injection site pruritus [Recovered/Resolved]
  - Flushing [Recovered/Resolved]
  - Injection site rash [Recovered/Resolved]

NARRATIVE: CASE EVENT DATE: 20201219
